FAERS Safety Report 6158564-6 (Version None)
Quarter: 2009Q2

REPORT INFORMATION
  Report Type: 
  Country: None (occurrence: None)
  Receive Date: 20090415
  Receipt Date: 20090415
  Transmission Date: 20091009
  Serious: No
  Sender: FDA-Public Use
  Company Number: None

PATIENT
  Age: 59 Year
  Sex: Male
  Weight: 103.4201 kg

DRUGS (2)
  1. METHOCARBAMOL [Suspect]
     Indication: BACK PAIN
     Dosage: 750MG BID PO
     Route: 048
     Dates: start: 20070522, end: 20070531
  2. METHOCARBAMOL [Suspect]
     Indication: MYOFASCIAL PAIN SYNDROME
     Dosage: 750MG BID PO
     Route: 048
     Dates: start: 20070522, end: 20070531

REACTIONS (2)
  - DRUG INEFFECTIVE [None]
  - PRODUCT QUALITY ISSUE [None]
